FAERS Safety Report 24886999 (Version 1)
Quarter: 2025Q1

REPORT INFORMATION
  Report Type: Spontaneous
  Country: GB (occurrence: GB)
  Receive Date: 20250127
  Receipt Date: 20250127
  Transmission Date: 20250408
  Serious: Yes (Other)
  Sender: NOVO NORDISK
  Company Number: GB-MHRA-EMIS-1973-d34812b4-e42a-417a-89bc-afd907e1f7bf

PATIENT
  Age: 58 Year
  Sex: Female
  Weight: 76 kg

DRUGS (2)
  1. WEGOVY [Suspect]
     Active Substance: SEMAGLUTIDE
     Indication: Product used for unknown indication
     Dosage: 0.5 MG, QW
     Route: 058
     Dates: start: 20241001
  2. VAGIFEM [Concomitant]
     Active Substance: ESTRADIOL
     Indication: Hormone replacement therapy
     Route: 067
     Dates: start: 20241216

REACTIONS (2)
  - Hyperparathyroidism primary [Unknown]
  - Blood calcium increased [Unknown]
